FAERS Safety Report 9994801 (Version 1)
Quarter: 2014Q1

REPORT INFORMATION
  Report Type: Spontaneous
  Country: NO (occurrence: None)
  Receive Date: 20140306
  Receipt Date: 20140306
  Transmission Date: 20141002
  Serious: Yes (Hospitalization)
  Sender: FDA-Public Use
  Company Number: SYM-2014-18002

PATIENT
  Age: 23 Year
  Sex: Female

DRUGS (1)
  1. WELLBUTRIN RETARD [Suspect]
     Indication: DEPRESSION
     Dates: start: 201212

REACTIONS (19)
  - Derealisation [None]
  - Weight decreased [None]
  - Arthralgia [None]
  - Dyspnoea [None]
  - Insomnia [None]
  - Back pain [None]
  - Sensory loss [None]
  - Chills [None]
  - Amnesia [None]
  - Palpitations [None]
  - Abdominal pain upper [None]
  - Nausea [None]
  - Muscle twitching [None]
  - Dizziness [None]
  - Convulsion [None]
  - Inappropriate schedule of drug administration [None]
  - Extra dose administered [None]
  - Pollakiuria [None]
  - Micturition disorder [None]
